FAERS Safety Report 24289231 (Version 2)
Quarter: 2024Q3

REPORT INFORMATION
  Report Type: Report from Study
  Country: US (occurrence: US)
  Receive Date: 20240906
  Receipt Date: 20240911
  Transmission Date: 20241017
  Serious: No
  Sender: DECIPHERA PHARMACEUTICALS
  Company Number: US-DECIPHERA PHARMACEUTICALS LLC-2024US000754

PATIENT
  Age: 79 Year
  Sex: Female
  Weight: 94.1 kg

DRUGS (2)
  1. QINLOCK [Suspect]
     Active Substance: RIPRETINIB
     Indication: Gastrointestinal stromal tumour
     Dosage: 150 MILLIGRAM, QD
     Route: 048
     Dates: start: 20240819
  2. QINLOCK [Suspect]
     Active Substance: RIPRETINIB
     Dosage: 150 MILLIGRAM (INCREASED DOSE, FREQUENCY NOT PROVIDED))
     Route: 048
     Dates: start: 20240902

REACTIONS (4)
  - Abdominal pain upper [Recovering/Resolving]
  - Myalgia [Unknown]
  - Fatigue [Unknown]
  - Constipation [Recovering/Resolving]

NARRATIVE: CASE EVENT DATE: 20240825
